FAERS Safety Report 19503159 (Version 1)
Quarter: 2021Q3

REPORT INFORMATION
  Report Type: Spontaneous
  Country: US (occurrence: US)
  Receive Date: 20210707
  Receipt Date: 20210707
  Transmission Date: 20211014
  Serious: No
  Sender: FDA-Public Use
  Company Number: US-BAYER-2021-171321

PATIENT
  Age: 84 Year
  Sex: Female

DRUGS (1)
  1. MIRALAX [Suspect]
     Active Substance: POLYETHYLENE GLYCOL 3350
     Indication: GASTROINTESTINAL INFECTION
     Dosage: 17 G, BID
     Route: 048
     Dates: start: 202107, end: 20210707

REACTIONS (2)
  - Drug ineffective [None]
  - Inappropriate schedule of product administration [None]
